FAERS Safety Report 16480064 (Version 1)
Quarter: 2019Q2

REPORT INFORMATION
  Report Type: Spontaneous
  Country: CN (occurrence: CN)
  Receive Date: 20190626
  Receipt Date: 20190626
  Transmission Date: 20190711
  Serious: Yes (Other)
  Sender: FDA-Public Use
  Company Number: CN-ELI_LILLY_AND_COMPANY-CN201906010843

PATIENT
  Age: 74 Year
  Sex: Male

DRUGS (2)
  1. HUMULIN 70/30 [Suspect]
     Active Substance: INSULIN HUMAN
     Indication: DIABETES MELLITUS
     Dosage: 6 U, EACH MORNING
     Route: 058
     Dates: start: 2017
  2. HUMULIN 70/30 [Suspect]
     Active Substance: INSULIN HUMAN
     Dosage: 8 U, DAILY (NIGHT)
     Route: 058
     Dates: start: 2017

REACTIONS (3)
  - Incorrect dose administered [Recovering/Resolving]
  - Cerebral infarction [Recovering/Resolving]
  - Diabetic complication [Recovering/Resolving]

NARRATIVE: CASE EVENT DATE: 2018
